FAERS Safety Report 8565235-5 (Version None)
Quarter: 2012Q3

REPORT INFORMATION
  Report Type: 
  Country: None (occurrence: None)
  Receive Date: 20120803
  Receipt Date: 20120731
  Transmission Date: 20120928
  Serious: Yes (Hospitalization)
  Sender: FDA-Public Use
  Company Number: JP-GLAXOSMITHKLINE-B0813774A

PATIENT
  Sex: Male

DRUGS (3)
  1. REVATIO [Concomitant]
     Indication: PULMONARY ARTERIAL HYPERTENSION
     Dosage: 60MG PER DAY
     Route: 048
     Dates: start: 20120703
  2. FLOLAN [Suspect]
     Indication: PULMONARY ARTERIAL HYPERTENSION
     Dosage: .0058MGKM PER DAY
     Route: 042
     Dates: start: 20120704
  3. DOBUTAMINE HYDROCHLORIDE [Concomitant]
     Indication: PULMONARY ARTERIAL HYPERTENSION
     Route: 042
     Dates: start: 20120703

REACTIONS (3)
  - CIRCULATORY COLLAPSE [None]
  - LIVER DISORDER [None]
  - PLATELET COUNT DECREASED [None]
